FAERS Safety Report 14558906 (Version 1)
Quarter: 2018Q1

REPORT INFORMATION
  Report Type: Report from Study
  Country: DE (occurrence: DE)
  Receive Date: 20180221
  Receipt Date: 20180221
  Transmission Date: 20180509
  Serious: Yes (Hospitalization, Other)
  Sender: FDA-Public Use
  Company Number: DE-TEVA-2018-DE-858328

PATIENT
  Sex: Male

DRUGS (23)
  1. PREDNISOLON [Concomitant]
     Active Substance: PREDNISOLONE
     Route: 065
  2. NORSPAN (GERMANY) [Concomitant]
     Route: 065
  3. CANDESARTAN. [Concomitant]
     Active Substance: CANDESARTAN
     Dosage: 16 MILLIGRAM DAILY;
     Route: 065
  4. EPLERENONA [Concomitant]
     Active Substance: EPLERENONE
     Dosage: 25 MILLIGRAM DAILY;
     Route: 065
  5. BUPRENORPHINE. [Suspect]
     Active Substance: BUPRENORPHINE
     Indication: PAIN
     Route: 060
  6. NITROLINGUAL [Concomitant]
     Active Substance: NITROGLYCERIN
  7. DIGIMED [Concomitant]
     Active Substance: DIGOXIN
     Route: 065
  8. TORASEMID [Concomitant]
     Active Substance: TORSEMIDE
     Dosage: 10 MILLIGRAM DAILY;
     Route: 065
  9. TOCILIZUMAB. [Suspect]
     Active Substance: TOCILIZUMAB
     Indication: TEMPORAL ARTERITIS
     Route: 058
     Dates: start: 20160920
  10. FOLIC ACID. [Concomitant]
     Active Substance: FOLIC ACID
     Route: 065
  11. ELIQUIS [Concomitant]
     Active Substance: APIXABAN
     Dosage: 5 MILLIGRAM DAILY;
     Route: 065
  12. ARCOXIA [Concomitant]
     Active Substance: ETORICOXIB
     Indication: PAIN
     Route: 065
  13. DEKRISTOL [Concomitant]
     Active Substance: CHOLECALCIFEROL
     Route: 065
  14. METOPROLOL SUCCINATE. [Concomitant]
     Active Substance: METOPROLOL SUCCINATE
     Dosage: 95 MILLIGRAM DAILY;
     Route: 065
  15. CORTISONE [Concomitant]
     Active Substance: CORTISONE\HYDROCORTISONE
     Route: 065
  16. METHOTREXATE. [Concomitant]
     Active Substance: METHOTREXATE
     Route: 058
  17. CORTISONE [Concomitant]
     Active Substance: CORTISONE\HYDROCORTISONE
     Route: 065
  18. ALENDRONIC ACID [Concomitant]
     Active Substance: ALENDRONIC ACID
     Route: 065
  19. DICLOFENAC [Concomitant]
     Active Substance: DICLOFENAC
     Route: 065
  20. PANTOPRAZOL [Concomitant]
     Active Substance: PANTOPRAZOLE SODIUM
     Route: 065
  21. ASPIRIN. [Concomitant]
     Active Substance: ASPIRIN
     Route: 065
  22. PREGABALIN. [Concomitant]
     Active Substance: PREGABALIN
     Dosage: 150 MILLIGRAM DAILY;
     Route: 065
  23. SIMVASTATIN. [Concomitant]
     Active Substance: SIMVASTATIN
     Dosage: 40 MILLIGRAM DAILY;
     Route: 065

REACTIONS (11)
  - Intentional product use issue [Unknown]
  - Nasopharyngitis [Unknown]
  - Hypoaesthesia [Recovered/Resolved]
  - Bowen^s disease [Unknown]
  - Injection site swelling [Recovered/Resolved]
  - Influenza [Unknown]
  - Staphylococcal infection [Unknown]
  - Polyneuropathy [Unknown]
  - Rheumatoid arthritis [Recovered/Resolved]
  - Dizziness [Unknown]
  - Ear neoplasm malignant [Recovering/Resolving]

NARRATIVE: CASE EVENT DATE: 201710
